FAERS Safety Report 16137172 (Version 5)
Quarter: 2020Q4

REPORT INFORMATION
  Report Type: Report from Study
  Country: BR (occurrence: BR)
  Receive Date: 20190329
  Receipt Date: 20201010
  Transmission Date: 20210113
  Serious: Yes (Other)
  Sender: FDA-Public Use
  Company Number: PHHY2019BR044049

PATIENT
  Age: 9 Year
  Sex: Male
  Weight: 54 kg

DRUGS (6)
  1. ILARIS [Suspect]
     Active Substance: CANAKINUMAB
     Dosage: 150 MG, EVERY 60 DAYS
     Route: 065
     Dates: start: 20200630
  2. ETANERCEPT [Suspect]
     Active Substance: ETANERCEPT
     Indication: PRODUCT USED FOR UNKNOWN INDICATION
     Dosage: 50 MG
     Route: 065
     Dates: start: 2018
  3. ILARIS [Suspect]
     Active Substance: CANAKINUMAB
     Dosage: UNK
     Route: 065
     Dates: start: 20181031
  4. ILARIS [Suspect]
     Active Substance: CANAKINUMAB
     Dosage: UNK
     Route: 065
     Dates: start: 20200430
  5. ILARIS [Suspect]
     Active Substance: CANAKINUMAB
     Indication: TUMOUR NECROSIS FACTOR RECEPTOR-ASSOCIATED PERIODIC SYNDROME
     Dosage: 150 MG, EVERY 8 WEEKS/ EVERY 2 MONTHS, (60 DAYS)
     Route: 058
     Dates: start: 20181018
  6. ILARIS [Suspect]
     Active Substance: CANAKINUMAB
     Indication: AUTOINFLAMMATORY DISEASE
     Dosage: 150 MG, EVERY 8 WEEKS/ / EVERY 2 MONTHS
     Route: 058
     Dates: start: 201902

REACTIONS (25)
  - Rhinitis [Recovering/Resolving]
  - Pyrexia [Recovered/Resolved]
  - Rhinorrhoea [Recovered/Resolved]
  - Nasal congestion [Not Recovered/Not Resolved]
  - Rhinorrhoea [Recovered/Resolved]
  - Cough [Recovered/Resolved]
  - Vomiting [Recovered/Resolved]
  - Viral infection [Recovered/Resolved]
  - Influenza [Not Recovered/Not Resolved]
  - Inappropriate schedule of product administration [Unknown]
  - Incorrect dose administered [Unknown]
  - Headache [Unknown]
  - Pharyngeal abscess [Recovered/Resolved]
  - Vomiting [Recovered/Resolved]
  - Rhinorrhoea [Recovered/Resolved]
  - Abdominal pain [Unknown]
  - Rhinitis allergic [Not Recovered/Not Resolved]
  - Therapy non-responder [Unknown]
  - Urticaria [Recovered/Resolved]
  - Viral infection [Recovered/Resolved]
  - Diarrhoea [Recovered/Resolved]
  - Influenza [Recovered/Resolved]
  - Illness [Unknown]
  - Pharyngeal inflammation [Recovered/Resolved]
  - Influenza [Recovered/Resolved]

NARRATIVE: CASE EVENT DATE: 201709
